FAERS Safety Report 18581351 (Version 3)
Quarter: 2021Q1

REPORT INFORMATION
  Report Type: Spontaneous
  Country: JP (occurrence: JP)
  Receive Date: 20201204
  Receipt Date: 20210122
  Transmission Date: 20210419
  Serious: Yes (Hospitalization)
  Sender: FDA-Public Use
  Company Number: JP-TAIHO ONCOLOGY  INC-JPTT200443

PATIENT
  Age: 8 Decade
  Sex: Male

DRUGS (2)
  1. AVASTIN [Concomitant]
     Active Substance: BEVACIZUMAB
     Dosage: DETAILS NOT REPORTED
     Route: 041
     Dates: start: 20201020
  2. LONSURF [Suspect]
     Active Substance: TIPIRACIL HYDROCHLORIDE\TRIFLURIDINE
     Indication: PRODUCT USED FOR UNKNOWN INDICATION
     Dosage: DOSE NOT REPORTED, ADMINISTRATION ON DAYS 1?5 AND 8?12
     Route: 048
     Dates: start: 20201020, end: 20201031

REACTIONS (1)
  - Cholestasis [Unknown]
